FAERS Safety Report 6534423-1 (Version None)
Quarter: 2010Q1

REPORT INFORMATION
  Report Type: 
  Country: None (occurrence: None)
  Receive Date: 20100112
  Receipt Date: 20100104
  Transmission Date: 20100710
  Serious: Yes (Other)
  Sender: FDA-Public Use
  Company Number: US-AMGEN-QUU380916

PATIENT
  Sex: Female

DRUGS (2)
  1. ENBREL [Suspect]
     Indication: RHEUMATOID ARTHRITIS
     Route: 058
     Dates: start: 20091202, end: 20091215
  2. PLAQUENIL [Concomitant]
     Route: 048

REACTIONS (4)
  - DYSARTHRIA [None]
  - FALL [None]
  - LETHARGY [None]
  - SPEECH DISORDER [None]
